FAERS Safety Report 11334206 (Version 1)
Quarter: 2015Q3

REPORT INFORMATION
  Report Type: Spontaneous
  Country: US (occurrence: US)
  Receive Date: 20150803
  Receipt Date: 20150803
  Transmission Date: 20151125
  Serious: No
  Sender: FDA-Public Use
  Company Number: US-SA-2015SA093396

PATIENT
  Sex: Male

DRUGS (1)
  1. AMBIEN CR [Suspect]
     Active Substance: ZOLPIDEM TARTRATE
     Indication: INSOMNIA
     Dosage: ATIENT TOOK IT FROM 2 YEARS AGO
     Route: 048

REACTIONS (2)
  - Somnolence [Not Recovered/Not Resolved]
  - Hangover [Not Recovered/Not Resolved]
